FAERS Safety Report 22173233 (Version 3)
Quarter: 2023Q2

REPORT INFORMATION
  Report Type: Other
  Country: BE (occurrence: None)
  Receive Date: 20230404
  Receipt Date: 20230505
  Transmission Date: 20230721
  Serious: No
  Sender: FDA-Public Use
  Company Number: BE-ROCHE-3317950

PATIENT
  Sex: Female
  Weight: 95 kg

DRUGS (16)
  1. OCRELIZUMAB [Suspect]
     Active Substance: OCRELIZUMAB
     Indication: Relapsing-remitting multiple sclerosis
     Dosage: DOSE LAST STUDY DRUG ADMIN PRIOR AE/SAE 600 MG, START DATE OF MOST RECENT DOSE OF STUDY DRUG PRIOR T
     Route: 042
     Dates: start: 20200109
  2. OCRELIZUMAB [Suspect]
     Active Substance: OCRELIZUMAB
     Dosage: SUBSEQUENT DOSES ON: 27/JAN/2021, 28/JUL/2021, 23/FEB/2022, 31/AUG/2022, 08/MAR/2023
     Route: 042
     Dates: start: 20200727, end: 20200727
  3. LEVOTHYROXINE SODIUM [Concomitant]
     Active Substance: LEVOTHYROXINE SODIUM
     Route: 048
     Dates: start: 20141007
  4. DALFAMPRIDINE [Concomitant]
     Active Substance: DALFAMPRIDINE
     Route: 048
     Dates: start: 20200327
  5. OTILONIUM BROMIDE [Concomitant]
     Active Substance: OTILONIUM BROMIDE
     Route: 048
     Dates: start: 20220317
  6. COLLAGENE [Concomitant]
     Route: 048
     Dates: start: 20220823
  7. CANNEBERGE [Concomitant]
     Indication: Prophylaxis
     Route: 048
     Dates: start: 20220620, end: 20230224
  8. DAFALGAN [Concomitant]
     Active Substance: ACETAMINOPHEN
     Route: 048
  9. IBUPROFEN [Concomitant]
     Active Substance: IBUPROFEN
     Route: 048
  10. BACLOFEN [Concomitant]
     Active Substance: BACLOFEN
     Route: 048
     Dates: start: 20220831
  11. MEDROL [Concomitant]
     Active Substance: METHYLPREDNISOLONE
     Route: 048
     Dates: start: 20221022, end: 20221120
  12. PANTOPRAZOLE SODIUM [Concomitant]
     Active Substance: PANTOPRAZOLE SODIUM
     Route: 048
     Dates: start: 20221011
  13. D PEARLS [Concomitant]
     Route: 048
     Dates: start: 20221011
  14. ESCITALOPRAM OXALATE [Concomitant]
     Active Substance: ESCITALOPRAM OXALATE
     Route: 048
     Dates: start: 20221011
  15. ZOLPIDEM [Concomitant]
     Active Substance: ZOLPIDEM TARTRATE
     Route: 048
     Dates: start: 20221011
  16. MELATONIN [Concomitant]
     Active Substance: MELATONIN
     Route: 060
     Dates: start: 20220801, end: 20230210

REACTIONS (1)
  - Heavy menstrual bleeding [Unknown]
